FAERS Safety Report 5115390-4 (Version None)
Quarter: 2006Q3

REPORT INFORMATION
  Report Type: 
  Country: None (occurrence: None)
  Receive Date: 20060922
  Receipt Date: 20060907
  Transmission Date: 20061208
  Serious: Yes (Hospitalization)
  Sender: FDA-Public Use
  Company Number: 2346

PATIENT
  Age: 57 Year
  Sex: Male
  Weight: 60.4 kg

DRUGS (7)
  1. ONTAK [Suspect]
     Indication: MYCOSIS FUNGOIDES
     Dosage: 18 UG/KG/D QD IV
     Route: 042
     Dates: start: 20060725
  2. ASPIRIN [Concomitant]
  3. AMLODIPINE [Concomitant]
  4. ATORVASTATIN [Concomitant]
  5. BETAMETHASONE [Concomitant]
  6. ISOSORBIDE MONONITRATE [Concomitant]
  7. TENORMIN [Concomitant]

REACTIONS (5)
  - PERITONEAL HAEMORRHAGE [None]
  - RESPIRATORY DISTRESS [None]
  - SPLENIC RUPTURE [None]
  - SYNCOPE [None]
  - THROMBOPHLEBITIS [None]
